FAERS Safety Report 8899000 (Version 1)
Quarter: 2012Q4

REPORT INFORMATION
  Report Type: 
  Country: US (occurrence: US)
  Receive Date: 20121109
  Receipt Date: 20121109
  Transmission Date: 20130627
  Serious: Yes (Hospitalization, Disabling, Other)
  Sender: FDA-Public Use
  Company Number: US-ELI_LILLY_AND_COMPANY-US201211000136

PATIENT
  Sex: Female

DRUGS (4)
  1. HUMALOG LISPRO [Suspect]
     Indication: TYPE 2 DIABETES MELLITUS
     Dosage: UNK
     Dates: start: 2002
  2. HUMALOG LISPRO [Suspect]
     Indication: TYPE 2 DIABETES MELLITUS
     Dosage: UNK, prn
     Dates: end: 2002
  3. LANTUS [Concomitant]
  4. LEVEMIR [Concomitant]

REACTIONS (13)
  - Myocardial infarction [Unknown]
  - Pneumonia [Unknown]
  - Spinal column stenosis [Unknown]
  - Foreign body [Unknown]
  - Oedema peripheral [Unknown]
  - Erythema [Unknown]
  - Infection [Unknown]
  - Pneumonia [Unknown]
  - Rheumatoid arthritis [Unknown]
  - Arteriosclerosis [Unknown]
  - Neuropathy peripheral [Unknown]
  - Cataract [Recovered/Resolved]
  - Visual impairment [Recovered/Resolved]
